FAERS Safety Report 16749742 (Version 1)
Quarter: 2019Q3

REPORT INFORMATION
  Report Type: Spontaneous
  Country: RU (occurrence: RU)
  Receive Date: 20190828
  Receipt Date: 20190828
  Transmission Date: 20191005
  Serious: Yes (Life-Threatening, Hospitalization, Other)
  Sender: FDA-Public Use
  Company Number: RU-MACLEODS PHARMACEUTICALS US LTD-MAC2019022739

PATIENT

DRUGS (5)
  1. SPIRONOLACTONE. [Concomitant]
     Active Substance: SPIRONOLACTONE
     Indication: DIURETIC THERAPY
     Dosage: 50 MILLIGRAM
     Route: 065
  2. FUROSEMIDE. [Concomitant]
     Active Substance: FUROSEMIDE
     Indication: DIURETIC THERAPY
     Dosage: 80 MILLIGRAM
     Route: 065
  3. ALBUMIN [Concomitant]
     Active Substance: ALBUMIN HUMAN
     Indication: DIURETIC THERAPY
     Route: 042
  4. SILDENAFIL. [Suspect]
     Active Substance: SILDENAFIL
     Indication: PULMONARY ARTERIAL HYPERTENSION
     Dosage: 30 MILLIGRAM, QD
     Route: 065
  5. ACETAZOLAMIDE. [Suspect]
     Active Substance: ACETAZOLAMIDE
     Indication: DIURETIC THERAPY
     Dosage: 300 MILLIGRAM, QD
     Route: 065

REACTIONS (3)
  - Metabolic acidosis [Recovering/Resolving]
  - Oxygen saturation decreased [Recovering/Resolving]
  - Loss of consciousness [Recovered/Resolved]
